FAERS Safety Report 7475213-5 (Version None)
Quarter: 2011Q2

REPORT INFORMATION
  Report Type: 
  Country: None (occurrence: None)
  Receive Date: 20110512
  Receipt Date: 20110428
  Transmission Date: 20111010
  Serious: Yes (Life-Threatening, Hospitalization, Other)
  Sender: FDA-Public Use
  Company Number: US-ELI_LILLY_AND_COMPANY-US201105000804

PATIENT
  Age: 65 Year

DRUGS (2)
  1. FORTEO [Suspect]
     Indication: OSTEOPOROSIS
     Dosage: UNK
     Dates: start: 20080101, end: 20090101
  2. FORTEO [Suspect]
     Dosage: UNK
     Dates: start: 20100101

REACTIONS (8)
  - POSTOPERATIVE WOUND INFECTION [None]
  - PYREXIA [None]
  - INJECTION SITE REACTION [None]
  - URINARY TRACT INFECTION [None]
  - SURGERY [None]
  - INJECTION SITE ERYTHEMA [None]
  - MECHANICAL VENTILATION [None]
  - INJECTION SITE WARMTH [None]
